FAERS Safety Report 17451500 (Version 1)
Quarter: 2020Q1

REPORT INFORMATION
  Report Type: Spontaneous
  Country: US (occurrence: US)
  Receive Date: 20200223
  Receipt Date: 20200223
  Transmission Date: 20200409
  Serious: Yes (Other)
  Sender: FDA-Public Use
  Company Number: None

PATIENT
  Age: 15 Month
  Sex: Female
  Weight: 9.9 kg

DRUGS (1)
  1. NYSTATIN CREAM [Suspect]
     Active Substance: NYSTATIN
     Indication: FUNGAL INFECTION
     Dosage: ?          QUANTITY:2 CREAM;?
     Route: 061
     Dates: start: 20200218, end: 20200220

REACTIONS (5)
  - Skin irritation [None]
  - Adverse drug reaction [None]
  - Rash erythematous [None]
  - Swelling [None]
  - Chemical burn [None]

NARRATIVE: CASE EVENT DATE: 20200220
